FAERS Safety Report 14347923 (Version 3)
Quarter: 2018Q1

REPORT INFORMATION
  Report Type: Spontaneous
  Country: US (occurrence: US)
  Receive Date: 20180103
  Receipt Date: 20180328
  Transmission Date: 20180509
  Serious: No
  Sender: FDA-Public Use
  Company Number: US-PFIZER INC-2017554633

PATIENT
  Age: 64 Year
  Sex: Female

DRUGS (1)
  1. METRONIDAZOLE. [Suspect]
     Active Substance: METRONIDAZOLE
     Indication: DIVERTICULITIS
     Dosage: 500 MG, THREE TIMES A DAY
     Dates: start: 20171224, end: 20180103

REACTIONS (5)
  - Dysphagia [Recovered/Resolved]
  - Product use in unapproved indication [Unknown]
  - Dysgeusia [Recovered/Resolved]
  - Product odour abnormal [Unknown]
  - Vomiting [Recovered/Resolved]

NARRATIVE: CASE EVENT DATE: 20171224
